FAERS Safety Report 8351946 (Version 3)
Quarter: 2012Q4

REPORT INFORMATION
  Report Type: 
  Country: US (occurrence: US)
  Receive Date: 20120124
  Receipt Date: 20121025
  Transmission Date: 20130627
  Serious: Yes (Hospitalization, Other)
  Sender: FDA-Public Use
  Company Number: US-ASTRAZENECA-2012SE03878

PATIENT
  Age: 69 Year
  Sex: Female

DRUGS (1)
  1. SYMBICORT PMDI [Suspect]
     Route: 055

REACTIONS (4)
  - Aneurysm [Unknown]
  - Cerebrovascular accident [Unknown]
  - Memory impairment [Unknown]
  - Malaise [Unknown]
